FAERS Safety Report 24545356 (Version 1)
Quarter: 2024Q4

REPORT INFORMATION
  Report Type: Spontaneous
  Country: US (occurrence: None)
  Receive Date: 20241023
  Receipt Date: 20241023
  Transmission Date: 20250114
  Serious: Yes (unspecified)
  Sender: Public
  Company Number: None

PATIENT
  Age: 6 Year
  Sex: Male
  Weight: 20.5 kg

DRUGS (1)
  1. GAMUNEX-C [Suspect]
     Active Substance: HUMAN IMMUNOGLOBULIN G
     Indication: Guillain-Barre syndrome
     Dosage: FREQUENCY : DAILY;?
     Route: 042
     Dates: start: 20241020

REACTIONS (3)
  - Hypothermia [None]
  - Irritability [None]
  - Infusion related reaction [None]

NARRATIVE: CASE EVENT DATE: 20241021
